FAERS Safety Report 20635766 (Version 1)
Quarter: 2022Q1

REPORT INFORMATION
  Report Type: Spontaneous
  Country: DE (occurrence: None)
  Receive Date: 20220325
  Receipt Date: 20220325
  Transmission Date: 20220423
  Serious: No
  Sender: FDA-Public Use
  Company Number: DE-Spark Therapeutics, Inc.-DE-SPK-21-00121

PATIENT

DRUGS (2)
  1. VORETIGENE NEPARVOVEC [Suspect]
     Active Substance: VORETIGENE NEPARVOVEC
     Indication: Product used for unknown indication
  2. VORETIGENE NEPARVOVEC [Suspect]
     Active Substance: VORETIGENE NEPARVOVEC
     Indication: Product used for unknown indication

REACTIONS (2)
  - Retinal degeneration [Unknown]
  - Visual impairment [Unknown]
